FAERS Safety Report 4332292-1 (Version None)
Quarter: 2004Q2

REPORT INFORMATION
  Report Type: 
  Country: None (occurrence: None)
  Receive Date: 20040405
  Receipt Date: 20020516
  Transmission Date: 20050107
  Serious: Yes (Death, Hospitalization)
  Sender: FDA-Public Use
  Company Number: US-MERCK-0205USA01999

PATIENT
  Age: 73 Year
  Sex: Female
  Weight: 100 kg

DRUGS (9)
  1. ALLOPURINOL [Concomitant]
     Indication: HYPERURICAEMIA
     Route: 065
     Dates: start: 19901106
  2. LIPITOR [Concomitant]
     Indication: HYPERCHOLESTEROLAEMIA
     Route: 065
     Dates: start: 19990807, end: 20010224
  3. BLINDED THERAPY [Suspect]
     Indication: HYPERTENSION
     Route: 065
     Dates: start: 20001213, end: 20010220
  4. WELLBUTRIN [Concomitant]
     Indication: DEPRESSION
     Route: 065
     Dates: start: 20000728
  5. CELEXA [Concomitant]
     Indication: DEPRESSION
     Route: 065
     Dates: start: 19981210
  6. ESTRATEST [Concomitant]
     Indication: HORMONE REPLACEMENT THERAPY
     Route: 065
     Dates: start: 19901023, end: 20010224
  7. VIOXX [Suspect]
     Indication: LOCALISED OSTEOARTHRITIS
     Route: 048
     Dates: start: 20001228, end: 20010219
  8. VIOXX [Suspect]
     Indication: ANALGESIC EFFECT
     Route: 048
     Dates: start: 20001228, end: 20010219
  9. ULTRAM [Concomitant]
     Indication: PAIN
     Route: 065
     Dates: start: 20001005

REACTIONS (23)
  - BRAIN DEATH [None]
  - BRAIN HERNIATION [None]
  - BRAIN OEDEMA [None]
  - COMA [None]
  - COUGH [None]
  - DECEREBRATION [None]
  - DRY MOUTH [None]
  - ELECTROCARDIOGRAM ST-T CHANGE [None]
  - HAEMORRHAGE INTRACRANIAL [None]
  - HEADACHE [None]
  - HYPERTENSION [None]
  - INJURY [None]
  - MYDRIASIS [None]
  - PCO2 DECREASED [None]
  - PO2 DECREASED [None]
  - PUPIL FIXED [None]
  - RESPIRATORY ARREST [None]
  - RESPIRATORY FAILURE [None]
  - RESPIRATORY RATE DECREASED [None]
  - SINUSITIS [None]
  - SNORING [None]
  - SUBARACHNOID HAEMORRHAGE [None]
  - TACHYCARDIA [None]
